FAERS Safety Report 8560249-3 (Version None)
Quarter: 2012Q3

REPORT INFORMATION
  Report Type: 
  Country: None (occurrence: None)
  Receive Date: 20120727
  Receipt Date: 20120727
  Transmission Date: 20120928
  Serious: Yes (Hospitalization)
  Sender: FDA-Public Use
  Company Number: None

PATIENT
  Age: 65 Year
  Sex: Male
  Weight: 118.2 kg

DRUGS (9)
  1. CRESTOR [Concomitant]
  2. PLAVIX [Suspect]
     Indication: CORONARY ARTERY DISEASE
     Dosage: 75MG DAILY PO CHRONIC
     Route: 048
  3. METFORMIN HYDROCHLORIDE [Concomitant]
  4. RANITIDINE [Concomitant]
  5. LISINOPRIL [Concomitant]
  6. ASPIRIN [Suspect]
     Indication: CORONARY ARTERY DISEASE
     Dosage: 1 OR 2 QHS PO CHRONIC
     Route: 048
  7. SERTRALINE HYDROCHLORIDE [Concomitant]
  8. VITAMIN D [Concomitant]
  9. NIASPAN [Concomitant]

REACTIONS (2)
  - APHASIA [None]
  - HAEMORRHAGE INTRACRANIAL [None]
